FAERS Safety Report 8418689-9 (Version None)
Quarter: 2012Q2

REPORT INFORMATION
  Report Type: 
  Country: None (occurrence: None)
  Receive Date: 20120607
  Receipt Date: 20120604
  Transmission Date: 20120825
  Serious: Yes (Other)
  Sender: FDA-Public Use
  Company Number: JP-BAYER-2012-007161

PATIENT
  Age: 60 Year
  Sex: Male
  Weight: 70 kg

DRUGS (3)
  1. NEXAVAR [Suspect]
     Indication: HEPATIC NEOPLASM MALIGNANT
     Dosage: 400 MG, BID
     Route: 048
     Dates: start: 20111005
  2. ZONISAMIDE [Concomitant]
     Dosage: DAILY DOSE 100 MG
     Route: 048
  3. NEXAVAR [Suspect]
     Dosage: 400 MG, BID
     Route: 048
     Dates: end: 20120105

REACTIONS (5)
  - LOSS OF CONSCIOUSNESS [None]
  - AMMONIA INCREASED [None]
  - HEAD INJURY [None]
  - ENCEPHALOPATHY [None]
  - DISORIENTATION [None]
